FAERS Safety Report 9477802 (Version 1)
Quarter: 2013Q3

REPORT INFORMATION
  Report Type: Spontaneous
  Country: US (occurrence: US)
  Receive Date: 20130827
  Receipt Date: 20130827
  Transmission Date: 20140515
  Serious: Yes (Hospitalization, Other)
  Sender: FDA-Public Use
  Company Number: US-BRISTOL-MYERS SQUIBB COMPANY-19212745

PATIENT
  Age: 86 Year
  Sex: Female
  Weight: 66.21 kg

DRUGS (11)
  1. SPRYCEL [Suspect]
     Indication: CHRONIC MYELOID LEUKAEMIA
     Dosage: INTERRUPTED ON 07JUN2013 AND RESTARTED ON 11-JUN-2013.?STOPPED AND RESTARTED ON 04JUL13
     Route: 048
     Dates: start: 20130605
  2. ALBUTEROL [Concomitant]
  3. CALCIUM CITRATE [Concomitant]
  4. COMBIVENT [Concomitant]
  5. PULMICORT [Concomitant]
  6. RANEXA [Concomitant]
  7. SALINE [Concomitant]
  8. TYLENOL [Concomitant]
  9. VITAMIN B COMPLEX [Concomitant]
  10. ZANTAC [Concomitant]
  11. CELEXA [Concomitant]

REACTIONS (6)
  - Rectal haemorrhage [Recovered/Resolved]
  - Craniocerebral injury [Unknown]
  - White blood cell count decreased [Recovering/Resolving]
  - Red blood cell count decreased [Recovering/Resolving]
  - Haematocrit decreased [Recovering/Resolving]
  - Wrist fracture [Unknown]
